FAERS Safety Report 6128503-2 (Version None)
Quarter: 2009Q1

REPORT INFORMATION
  Report Type: 
  Country: None (occurrence: None)
  Receive Date: 20090319
  Receipt Date: 20090305
  Transmission Date: 20090719
  Serious: Yes (Hospitalization)
  Sender: FDA-Public Use
  Company Number: 02100-JPN-06-0443

PATIENT
  Age: 46 Year
  Sex: Female

DRUGS (63)
  1. PLETAL [Suspect]
     Indication: CEREBRAL INFARCTION
     Dosage: 100 MG, BID ORAL
     Route: 048
     Dates: start: 20060420, end: 20060911
  2. NORMAL SALINE (SODIUM CHLORIDE) INJECTION [Concomitant]
  3. THIAMINE (THIAMINE) INJECTION [Concomitant]
  4. CYANOCOBALAMIN [Concomitant]
  5. DEXPANTHENOL (DEXPANTHENOL) INJECTION [Concomitant]
  6. NICOTINAMIDE (NICOTINAMIDE) INJECTION [Concomitant]
  7. PYRIDOXINE HYDROCHLORIDE (PYRIDOXINE HYDROCHLORIDE) INJECTION [Concomitant]
  8. RIBOFLAVIN SODIUM PHOSPHATE (RIBOFLAVIN SODIUM PHOSPHATE) INJECTION [Concomitant]
  9. THIAMINE HYDROCHLORIDE (BEECOM HEXA AMP./YUHAN CORPORATION) (THIAMINE [Concomitant]
  10. GLICLAZIDE (GLICLAZIDE) UNKNOWN [Concomitant]
  11. VOGLIBOSE (VOGLIBOSE) UNKNOWN [Concomitant]
  12. CIMETIDINE (CIMETIDINE) UNKNOWN [Concomitant]
  13. ALUMINIUM HYDROXIDE GEL (DRIED) (ALUMINIUM HYDROXIDE GEL (DRIED)) UNKN [Concomitant]
  14. MAGNESIUM CARBONATE (MAGNESIUM CARBONATE) UNKNOWN [Concomitant]
  15. ATORVASTATIN CALCIUM [Concomitant]
  16. ASPIRIN [Concomitant]
  17. METFORMIN HYDROCHLORIDE [Concomitant]
  18. MUCOSTA (REBAMIPIDE) TABLET [Concomitant]
  19. ALANINE (ALANINE) INJECTION [Concomitant]
  20. ARGININE (ARGININE) INJECTION [Concomitant]
  21. ASPARTIC ACID (ASPARTIC ACID) INJECTION [Concomitant]
  22. GLUTAMIC ACID (GLUTAMIC ACID) INJECTION [Concomitant]
  23. GLYCYL-L-GLUTAMINE (GLYCYL-L-GLUTAMINE) INJECTION [Concomitant]
  24. GLYCYL-L-TYROSINE (GLYCYL-L-TYROSINE) INJECTION [Concomitant]
  25. HISTIDINE (HISTIDINE) INJECTION [Concomitant]
  26. ISOLEUCINE (ISOLEUCINE) INJECTION [Concomitant]
  27. LEUCINE (LEUCINE) INJECTION [Concomitant]
  28. L-LYSINE (LYSINE) INJECTION [Concomitant]
  29. METHIONINE (METHIONINE) INJECTION [Concomitant]
  30. PHENYLALANINE (PHENYLALANINE) INJECTION [Concomitant]
  31. PROLINE (PROLINE) INJECTION [Concomitant]
  32. SERINE (SERINE) INJECTION [Concomitant]
  33. THREONINE (THREONINE) INJECTION [Concomitant]
  34. TRIPTOPHAN (TRIPTOPHAN) INJECTION [Concomitant]
  35. VALINE (GLAMIN INJ./FRESENIUS-KABI) (VALINE (GLAMIN INJ./FRESENIUS-KAB [Concomitant]
  36. ACETAMINOPHEN [Concomitant]
  37. MOSAPRIDE CITRATE (MOSAPRIDE CITRATE) UNKNOWN [Concomitant]
  38. GLIMEPIRIDE (GLIMEPIRIDE) UNKNOWN [Concomitant]
  39. ROSIGLITAZONE MALEATE (ROSIGLITAZONE MALEATE) UNKNOWN [Concomitant]
  40. LOSARTAN POTASSIUM [Concomitant]
  41. SIMVASTATIN [Concomitant]
  42. RAMIPRIL [Concomitant]
  43. AZELASTINE HYDROCHLORIDE (AZELASTINE HYDROCHLORIDE) UNKNOWN [Concomitant]
  44. EBASTINE [Concomitant]
  45. PSEUDOEPHEDRINE HCL [Concomitant]
  46. TIPEPIDINE HIBENZATE (TIPEPIDINE HIBENZATE) UNKNOWN [Concomitant]
  47. GLYCINE (AMINOACETIC ACID) INJECTION [Concomitant]
  48. L-ALANINE (L-ALANINE) INJECTION [Concomitant]
  49. L-ARGININE (L-ARGININE) INJECTION [Concomitant]
  50. L-ASPARTIC ACID (L-ASPARTIC ACID) INJECTION [Concomitant]
  51. L-CYCTEINE (L-CYCTEINE) INJECTION [Concomitant]
  52. L-GLUTAMIC ACID (L-GLUTAMIC ACID) INJECTION [Concomitant]
  53. L-HISTIDIEN (L-HISTIDIEN) INJECTION [Concomitant]
  54. L-LEUCINE (L-LEUCINE) INJECTION [Concomitant]
  55. L-ISOLEUCINE (L-ISOLEUCINE) INJECTION [Concomitant]
  56. L-METHIONINE (L-METHIONINE) UNKNOWN [Concomitant]
  57. L-PHENYLALAININE (L-PHENYLALANINE) INJECTION [Concomitant]
  58. L-PROLINE (L-PROLINE) [Concomitant]
  59. L-SERINE (L-SERINE) INJECTION [Concomitant]
  60. L-THREONINE (L-THREONINE) INJECTION [Concomitant]
  61. L-TRIPTOPHAN (L-TRIPTOPHAN) INJECTION [Concomitant]
  62. L-TYROSINE (L-TYROSINE) INJECTION [Concomitant]
  63. L-VALINE (PROAMIN INFU./HANALL) INJECTION [Concomitant]

REACTIONS (1)
  - BRAIN STEM INFARCTION [None]
